FAERS Safety Report 10670263 (Version 1)
Quarter: 2014Q4

REPORT INFORMATION
  Report Type: Spontaneous
  Country: US (occurrence: US)
  Receive Date: 20141223
  Receipt Date: 20141223
  Transmission Date: 20150529
  Serious: No
  Sender: FDA-Public Use
  Company Number: US-BIOGENIDEC-2014BI021424

PATIENT
  Age: 68 Year
  Sex: Female

DRUGS (6)
  1. VITAMIN B12 [Concomitant]
     Active Substance: CYANOCOBALAMIN
  2. VITAMIN D-1000 MAX ST [Concomitant]
  3. OXCARBAZEPINE. [Concomitant]
     Active Substance: OXCARBAZEPINE
  4. TECFIDERA [Suspect]
     Active Substance: DIMETHYL FUMARATE
     Indication: MULTIPLE SCLEROSIS
     Route: 048
     Dates: start: 20130228
  5. CRESTOR [Concomitant]
     Active Substance: ROSUVASTATIN CALCIUM
  6. FOSAMAX [Concomitant]
     Active Substance: ALENDRONATE SODIUM

REACTIONS (3)
  - Alopecia [Unknown]
  - Burning sensation [Unknown]
  - Flushing [Not Recovered/Not Resolved]
